FAERS Safety Report 12530885 (Version 1)
Quarter: 2016Q3

REPORT INFORMATION
  Report Type: Spontaneous
  Country: US (occurrence: US)
  Receive Date: 20160706
  Receipt Date: 20160706
  Transmission Date: 20161109
  Serious: Yes (Other)
  Sender: FDA-Public Use
  Company Number: US-PFIZER INC-2016326883

PATIENT
  Sex: Female
  Weight: 56.7 kg

DRUGS (1)
  1. XANAX [Suspect]
     Active Substance: ALPRAZOLAM
     Indication: INSOMNIA
     Dosage: 0.5 MG, 2X/DAY
     Route: 048
     Dates: end: 20151218

REACTIONS (5)
  - Amnesia [Recovering/Resolving]
  - Drug dependence [Unknown]
  - Pain [Not Recovered/Not Resolved]
  - Nervous system disorder [Unknown]
  - Burning sensation [Unknown]

NARRATIVE: CASE EVENT DATE: 2011
